FAERS Safety Report 4311013-2 (Version None)
Quarter: 2004Q1

REPORT INFORMATION
  Report Type: 
  Country: None (occurrence: None)
  Receive Date: 20040302
  Receipt Date: 20040216
  Transmission Date: 20041129
  Serious: Yes (Hospitalization)
  Sender: FDA-Public Use
  Company Number: 234088

PATIENT
  Age: 20 Year
  Sex: Female
  Weight: 49.3 kg

DRUGS (10)
  1. NOVONORM (REPAGLINIDE) TABLET, 0.5 MG [Suspect]
     Indication: DIABETES MELLITUS
     Dosage: 0.5 MG, QD, PER ORAL
     Route: 048
     Dates: start: 20020805
  2. LAMUNA [Concomitant]
  3. ACETYLCYSTEINE [Concomitant]
  4. TOCOPHEROL CONCENTRATE CAP [Concomitant]
  5. MULTIBIONTA FORTE (ASCORBIC ACID, RUTOSIDE, CALCIUM PANTOTHENATE, NICO [Concomitant]
  6. EICOSAPENTAENOIC ACID (FISH OIL, HYDROGENATED) [Concomitant]
  7. KREON (PANCREATIN) [Concomitant]
  8. INTAL [Concomitant]
  9. SULTANOL (SALBUTAMOL) [Concomitant]
  10. URSO FALK [Concomitant]

REACTIONS (2)
  - CHOLANGITIS [None]
  - CHOLELITHIASIS [None]
